FAERS Safety Report 17930576 (Version 2)
Quarter: 2020Q2

REPORT INFORMATION
  Report Type: Report from Study
  Country: DE (occurrence: DE)
  Receive Date: 20200623
  Receipt Date: 20200625
  Transmission Date: 20200714
  Serious: Yes (Other)
  Sender: FDA-Public Use
  Company Number: NVSC2020DE003253

PATIENT
  Sex: Female
  Weight: 53 kg

DRUGS (5)
  1. REVOLADE [Suspect]
     Active Substance: ELTROMBOPAG
     Indication: IMMUNE THROMBOCYTOPENIA
     Dosage: 75 MG, QD
     Route: 048
     Dates: start: 20190626, end: 20190722
  2. FERINJECT [Suspect]
     Active Substance: FERRIC CARBOXYMALTOSE
     Indication: PRODUCT USED FOR UNKNOWN INDICATION
     Dosage: UNK
     Route: 065
  3. IRON [Suspect]
     Active Substance: IRON
     Indication: PRODUCT USED FOR UNKNOWN INDICATION
     Dosage: 1 DF, OT
     Route: 065
  4. REVOLADE [Suspect]
     Active Substance: ELTROMBOPAG
     Dosage: 25 MG, QD
     Route: 048
     Dates: start: 20190723, end: 20191203
  5. CLARITHROMYCIN;METRONIDAZOLE;PANTOPRAZOLE [Concomitant]
     Indication: HELICOBACTER INFECTION
     Dosage: 2 DF, QD
     Route: 048
     Dates: start: 20190225, end: 201903

REACTIONS (5)
  - Vitamin B12 deficiency [Recovered/Resolved]
  - Product dose omission [Unknown]
  - Iron deficiency anaemia [Not Recovered/Not Resolved]
  - Fatigue [Unknown]
  - Haemorrhage [Unknown]

NARRATIVE: CASE EVENT DATE: 20190705
